FAERS Safety Report 19748776 (Version 1)
Quarter: 2021Q3

REPORT INFORMATION
  Report Type: Spontaneous
  Country: US (occurrence: US)
  Receive Date: 20210825
  Receipt Date: 20210825
  Transmission Date: 20211014
  Serious: Yes (Disabling)
  Sender: FDA-Public Use
  Company Number: None

PATIENT
  Age: 39 Year
  Sex: Female
  Weight: 63 kg

DRUGS (1)
  1. ZAFEMY [Suspect]
     Active Substance: ETHINYL ESTRADIOL\NORELGESTROMIN
     Indication: MENSTRUATION IRREGULAR
     Dosage: ?          QUANTITY:3 PATCH(ES);OTHER FREQUENCY:1/WK;?
     Route: 062
     Dates: start: 20210721, end: 20210825

REACTIONS (2)
  - Vaginal haemorrhage [None]
  - Device adhesion issue [None]

NARRATIVE: CASE EVENT DATE: 20210824
